FAERS Safety Report 8076766-9 (Version None)
Quarter: 2012Q1

REPORT INFORMATION
  Report Type: 
  Country: None (occurrence: None)
  Receive Date: 20120127
  Receipt Date: 20120120
  Transmission Date: 20120608
  Serious: Yes (Death)
  Sender: FDA-Public Use
  Company Number: IT-ALEXION PHARMACEUTICALS INC.-A201200115

PATIENT
  Sex: Male

DRUGS (3)
  1. SOLIRIS [Suspect]
     Dosage: 1200 MG, Q2W
     Route: 042
     Dates: start: 20110101
  2. SOLIRIS [Suspect]
     Dosage: 1500 MG, QW
     Route: 042
  3. SOLIRIS [Suspect]
     Indication: MALIGNANT ATROPHIC PAPULOSIS
     Dosage: 900 MG, QW
     Route: 042
     Dates: start: 20110320

REACTIONS (4)
  - COMA [None]
  - HYPOVOLAEMIC SHOCK [None]
  - HAEMORRHAGE [None]
  - CENTRAL NERVOUS SYSTEM LESION [None]
